FAERS Safety Report 17261544 (Version 2)
Quarter: 2020Q1

REPORT INFORMATION
  Report Type: Spontaneous
  Country: DE (occurrence: DE)
  Receive Date: 20200113
  Receipt Date: 20200124
  Transmission Date: 20200409
  Serious: Yes (Other)
  Sender: FDA-Public Use
  Company Number: DE-TEVA-2020-DE-1165441

PATIENT
  Age: 51 Year
  Sex: Female

DRUGS (6)
  1. XELJANZ [Suspect]
     Active Substance: TOFACITINIB CITRATE
     Indication: PSORIATIC ARTHROPATHY
     Dosage: 10 MILLIGRAM DAILY; 10 MG, QD (5 MG XDAY)
     Route: 065
     Dates: start: 20180117, end: 2019
  2. SHINGRIX [Suspect]
     Active Substance: RECOMBINANT VARICELLA ZOSTER VIRUS (VZV) GLYCOPROTEIN E
     Indication: IMMUNISATION
     Dosage: 1 DF, SINGLE
     Dates: start: 20190307, end: 20190307
  3. XELJANZ [Suspect]
     Active Substance: TOFACITINIB CITRATE
     Dosage: 5 MILLIGRAM DAILY; 5 MG, QD
     Route: 065
  4. TREXJECT [Suspect]
     Active Substance: METHOTREXATE SODIUM
     Dosage: 10 MG, WEEKLY (ALWAYS ON SATURDAY)
  5. XELJANZ [Suspect]
     Active Substance: TOFACITINIB CITRATE
     Dosage: 10 MILLIGRAM DAILY; 10 MG, QD (2X/DAY)
     Route: 065
     Dates: start: 20190117, end: 2019
  6. PREVNAR 13 [Suspect]
     Active Substance: PNEUMOCOCCAL 13-VALENT CONJUGATE VACCINE
     Indication: IMMUNISATION
     Dosage: 1 DF, SINGLE
     Dates: start: 20190307, end: 20190307

REACTIONS (8)
  - Erythema [Recovered/Resolved]
  - Oral herpes [Recovered/Resolved]
  - Product use issue [Unknown]
  - Serratia infection [Unknown]
  - Asthenia [Recovered/Resolved]
  - Pyrexia [Recovered/Resolved]
  - Insomnia [Recovered/Resolved]
  - Muscular weakness [Recovered/Resolved]

NARRATIVE: CASE EVENT DATE: 2019
